FAERS Safety Report 8123051-2 (Version None)
Quarter: 2011Q4

REPORT INFORMATION
  Report Type: 
  Country: None (occurrence: None)
  Receive Date: 20111227
  Receipt Date: 20111121
  Transmission Date: 20120403
  Serious: No
  Sender: FDA-Public Use
  Company Number: PHEH2011US010082

PATIENT
  Age: 60 Year
  Sex: Female

DRUGS (4)
  1. PROZAC [Concomitant]
  2. GILENYA [Suspect]
     Indication: MULTIPLE SCLEROSIS
     Dosage: 0.5 MG, QD, ORAL
     Route: 048
     Dates: start: 20110401
  3. DIOVAN (VALARTAN) [Concomitant]
  4. PRAVASTATIN [Concomitant]

REACTIONS (2)
  - HAIR TEXTURE ABNORMAL [None]
  - ONYCHOCLASIS [None]
